FAERS Safety Report 8368277-8 (Version None)
Quarter: 2012Q2

REPORT INFORMATION
  Report Type: 
  Country: None (occurrence: None)
  Receive Date: 20120517
  Receipt Date: 20120510
  Transmission Date: 20120825
  Serious: Yes (Hospitalization)
  Sender: FDA-Public Use
  Company Number: US-BAYER-2011-121054

PATIENT
  Age: 25 Year
  Sex: Female
  Weight: 90.703 kg

DRUGS (14)
  1. ACETAMINOPHEN W/ CODEINE [Concomitant]
     Dosage: UNK
     Dates: start: 20071001, end: 20080801
  2. SERTRALINE HYDROCHLORIDE [Concomitant]
     Indication: DEPRESSION
     Dosage: UNK
     Dates: start: 20080301, end: 20090601
  3. HYDROCODONE [Concomitant]
     Dosage: 5 MG, UNK
     Dates: start: 20081223
  4. YAZ [Suspect]
  5. TYLENOL W/ CODEINE NO. 3 [Concomitant]
     Dosage: UNK
     Dates: start: 20081201
  6. METOCLOPRAMIDE [Concomitant]
     Dosage: 10 MG, UNK
     Dates: start: 20081227
  7. CITALOPRAM HYDROBROMIDE [Concomitant]
     Indication: DEPRESSION
     Dosage: UNK
     Dates: start: 20060501, end: 20090401
  8. NITROFURANT MACRO [Concomitant]
     Dosage: UNK
     Dates: start: 20080729
  9. YAZ [Suspect]
     Indication: ORAL CONTRACEPTION
     Dosage: UNK
     Route: 048
     Dates: start: 20080601, end: 20090101
  10. YAZ [Suspect]
     Indication: PREMENSTRUAL SYNDROME
     Dosage: UNK
     Dates: start: 20090301, end: 20090801
  11. LORAZEPAM [Concomitant]
     Dosage: 1 MG, UNK
     Dates: start: 20081030
  12. IBUPROFEN [Concomitant]
     Dosage: UNK
     Dates: start: 20080801
  13. OXYCODONE HCL [Concomitant]
     Dosage: 5 MG, UNK
     Dates: start: 20081212
  14. CYCLOBENZAPRINE [Concomitant]
     Dosage: 10 MG, UNK
     Dates: start: 20081209

REACTIONS (8)
  - GENERAL PHYSICAL HEALTH DETERIORATION [None]
  - ABDOMINAL PAIN UPPER [None]
  - CHOLELITHIASIS [None]
  - NAUSEA [None]
  - VOMITING [None]
  - EMOTIONAL DISTRESS [None]
  - ANXIETY [None]
  - DEPRESSION [None]
